FAERS Safety Report 14248913 (Version 2)
Quarter: 2018Q1

REPORT INFORMATION
  Report Type: Spontaneous
  Country: US (occurrence: US)
  Receive Date: 20171204
  Receipt Date: 20180125
  Transmission Date: 20180508
  Serious: Yes (Other)
  Sender: FDA-Public Use
  Company Number: US-BAYER-2017-232237

PATIENT
  Age: 34 Year
  Sex: Female

DRUGS (2)
  1. MIRENA [Suspect]
     Active Substance: LEVONORGESTREL
     Indication: CONTRACEPTION
  2. MIRENA [Suspect]
     Active Substance: LEVONORGESTREL
     Indication: CONTRACEPTION
     Dosage: 20 MCG/24HR, CONT
     Route: 015
     Dates: start: 20161011

REACTIONS (21)
  - Sinusitis [None]
  - Genital discharge [Recovered/Resolved]
  - Menstruation delayed [None]
  - Anaemia [None]
  - Medical device repositioning [None]
  - Pain [None]
  - Menorrhagia [None]
  - Pollakiuria [None]
  - Abdominal pain lower [None]
  - Menometrorrhagia [None]
  - Vaginal haemorrhage [None]
  - Genital haemorrhage [None]
  - Device dislocation [None]
  - Vaginal infection [None]
  - Dysuria [None]
  - Breast discharge [None]
  - Menstruation irregular [None]
  - Pelvic pain [None]
  - Device deployment issue [None]
  - Vaginal discharge [None]
  - Amenorrhoea [None]
